FAERS Safety Report 4666550-8 (Version None)
Quarter: 2005Q2

REPORT INFORMATION
  Report Type: 
  Country: None (occurrence: None)
  Receive Date: 20050518
  Receipt Date: 20040811
  Transmission Date: 20051028
  Serious: Yes (Hospitalization)
  Sender: FDA-Public Use
  Company Number: 2004228134US

PATIENT
  Age: 35 Year
  Sex: Female
  Weight: 70 kg

DRUGS (9)
  1. DEPO-PROVERA [Suspect]
     Indication: CONTRACEPTION
     Dosage: INTRAMUSCULAR
     Route: 030
  2. IRON [Concomitant]
  3. IBUPROFEN [Concomitant]
  4. PROTONIX [Concomitant]
  5. LEXAPRO [Concomitant]
  6. VICODIN [Concomitant]
  7. HYDROMORPHONE HCL [Concomitant]
  8. PROMETHAZINE HCL [Concomitant]
  9. ELECTROLYTE SOLUTIONS [Concomitant]

REACTIONS (1)
  - PULMONARY EMBOLISM [None]
